FAERS Safety Report 26183247 (Version 1)
Quarter: 2025Q4

REPORT INFORMATION
  Report Type: Spontaneous
  Country: US (occurrence: US)
  Receive Date: 20251221
  Receipt Date: 20251221
  Transmission Date: 20260118
  Serious: Yes (Life-Threatening, Hospitalization, Other)
  Sender: AUROBINDO
  Company Number: US-AUROBINDO-AUR-APL-2025-062804

PATIENT
  Age: 66 Year
  Sex: Female

DRUGS (5)
  1. ROSUVASTATIN [Interacting]
     Active Substance: ROSUVASTATIN
     Indication: Hyperlipidaemia
     Dosage: 20 MILLIGRAM, DAILY
     Route: 065
  2. ROSUVASTATIN [Interacting]
     Active Substance: ROSUVASTATIN
     Dosage: 40 MILLIGRAM, DAILY
     Route: 065
  3. ABEMACICLIB [Interacting]
     Active Substance: ABEMACICLIB
     Indication: Hormone receptor positive HER2 positive breast cancer
     Dosage: UNK
     Route: 065
  4. LEVOTHYROXINE [Concomitant]
     Active Substance: LEVOTHYROXINE
     Indication: Hypothyroidism
     Dosage: UNK
     Route: 065
  5. FULVESTRANT [Concomitant]
     Active Substance: FULVESTRANT
     Indication: Hormone receptor positive HER2 positive breast cancer
     Dosage: UNK
     Route: 065

REACTIONS (6)
  - Rhabdomyolysis [Recovered/Resolved]
  - Acute kidney injury [Recovered/Resolved]
  - Drug interaction [Recovered/Resolved]
  - Aspartate aminotransferase increased [Unknown]
  - Alanine aminotransferase increased [Unknown]
  - Blood alkaline phosphatase increased [Unknown]
